FAERS Safety Report 4749778-8 (Version None)
Quarter: 2005Q3

REPORT INFORMATION
  Report Type: 
  Country: None (occurrence: None)
  Receive Date: 20050819
  Receipt Date: 20050819
  Transmission Date: 20060218
  Serious: Yes (Hospitalization)
  Sender: FDA-Public Use
  Company Number: None

PATIENT
  Age: 32 Year
  Sex: Male
  Weight: 99.7913 kg

DRUGS (4)
  1. CISPLATIN [Suspect]
  2. FLUOROURACIL [Suspect]
  3. DOCETAXEL [Suspect]
  4. RADIATION [Suspect]

REACTIONS (5)
  - ANASTOMOTIC HAEMORRHAGE [None]
  - HAEMATEMESIS [None]
  - HAEMATOCHEZIA [None]
  - OESOPHAGITIS [None]
  - THROMBOSIS [None]
